FAERS Safety Report 13022926 (Version 4)
Quarter: 2017Q1

REPORT INFORMATION
  Report Type: Spontaneous
  Country: US (occurrence: US)
  Receive Date: 20161213
  Receipt Date: 20170202
  Transmission Date: 20170428
  Serious: No
  Sender: FDA-Public Use
  Company Number: US-GLAXOSMITHKLINE-US2016183116

PATIENT
  Sex: Female
  Weight: 102.49 kg

DRUGS (1)
  1. ADVAIR DISKUS [Suspect]
     Active Substance: FLUTICASONE PROPIONATE\SALMETEROL XINAFOATE
     Indication: PRODUCT USED FOR UNKNOWN INDICATION
     Dosage: 1 PUFF(S), BID
     Route: 055
     Dates: start: 20131126

REACTIONS (5)
  - Device use error [Unknown]
  - Drug dose omission [Unknown]
  - Medication error [Unknown]
  - Product quality issue [Unknown]
  - Underdose [Unknown]
